FAERS Safety Report 20874527 (Version 8)
Quarter: 2023Q1

REPORT INFORMATION
  Report Type: Report from Study
  Country: DE (occurrence: DE)
  Receive Date: 20220525
  Receipt Date: 20230213
  Transmission Date: 20230418
  Serious: Yes (Life-Threatening, Hospitalization, Other)
  Sender: FDA-Public Use
  Company Number: DE-BRISTOL-MYERS SQUIBB COMPANY-2022-040904

PATIENT
  Age: 59 Year
  Sex: Male
  Weight: 149 kg

DRUGS (22)
  1. NIVOLUMAB [Suspect]
     Active Substance: NIVOLUMAB
     Indication: Non-small cell lung cancer
     Dosage: MOST RECENT DOSE WAS RECEIVED IN 24-FEB-2022
     Route: 042
     Dates: start: 20211104, end: 20220224
  2. PACLITAXEL [Suspect]
     Active Substance: PACLITAXEL
     Indication: Non-small cell lung cancer
     Dosage: MOST RECENT DOSE OF 265.0 MG WAS RECEIVED ON 17-FEB-2022
     Dates: start: 20211104, end: 20220217
  3. CARBOPLATIN [Suspect]
     Active Substance: CARBOPLATIN
     Indication: Non-small cell lung cancer
     Dosage: MOST RECENT DOSE OF 655 MG ON 03-FEB-2022
     Dates: start: 20211104, end: 20220203
  4. PIPERACILLIN SODIUM\TAZOBACTAM SODIUM [Concomitant]
     Active Substance: PIPERACILLIN SODIUM\TAZOBACTAM SODIUM
     Indication: Product used for unknown indication
     Dosage: 3 TIMES PER DAY
     Route: 042
     Dates: start: 20220501, end: 20220509
  5. PIPERACILLIN SODIUM\TAZOBACTAM SODIUM [Concomitant]
     Active Substance: PIPERACILLIN SODIUM\TAZOBACTAM SODIUM
  6. METHIMAZOLE [Concomitant]
     Active Substance: METHIMAZOLE
     Indication: Product used for unknown indication
     Dosage: DAILY; PER DAY
     Route: 048
     Dates: start: 20220331, end: 20220501
  7. METHIMAZOLE [Concomitant]
     Active Substance: METHIMAZOLE
  8. SITAGLIPTIN [Concomitant]
     Active Substance: SITAGLIPTIN
     Indication: Product used for unknown indication
     Dosage: DAILY; PER DAY
     Route: 048
     Dates: start: 20211125
  9. SITAGLIPTIN [Concomitant]
     Active Substance: SITAGLIPTIN
  10. METOPROLOL [Concomitant]
     Active Substance: METOPROLOL
     Indication: Product used for unknown indication
     Dosage: DAILY; PER DAY
     Route: 048
     Dates: start: 20211107, end: 20220501
  11. METOPROLOL [Concomitant]
     Active Substance: METOPROLOL
  12. OLODATEROL HYDROCHLORIDE\TIOTROPIUM BROMIDE MONOHYDRATE [Concomitant]
     Active Substance: OLODATEROL HYDROCHLORIDE\TIOTROPIUM BROMIDE MONOHYDRATE
     Indication: Product used for unknown indication
     Dosage: DAILY; PER DAY
     Route: 055
     Dates: start: 20211013
  13. OLODATEROL HYDROCHLORIDE\TIOTROPIUM BROMIDE MONOHYDRATE [Concomitant]
     Active Substance: OLODATEROL HYDROCHLORIDE\TIOTROPIUM BROMIDE MONOHYDRATE
  14. GRANISETRON [Concomitant]
     Active Substance: GRANISETRON
     Indication: Product used for unknown indication
     Dosage: OCCASIONAL
     Route: 048
     Dates: start: 20211104
  15. GRANISETRON [Concomitant]
     Active Substance: GRANISETRON
  16. METAMIZOLE [Concomitant]
     Active Substance: METAMIZOLE
     Indication: Product used for unknown indication
     Dosage: AS NEEDED
     Route: 048
     Dates: start: 20211019
  17. METAMIZOLE [Concomitant]
     Active Substance: METAMIZOLE
  18. METFORMIN [Concomitant]
     Active Substance: METFORMIN HYDROCHLORIDE
     Indication: Product used for unknown indication
     Dosage: BD; TWICE PER DAY?ONGOING
     Route: 048
     Dates: start: 20211125
  19. UNSPECIFIED INGREDIENT [Concomitant]
     Active Substance: UNSPECIFIED INGREDIENT
     Indication: Product used for unknown indication
     Dosage: ONCE
     Route: 042
     Dates: start: 20220501, end: 20220501
  20. PANTOPRAZOLE [Concomitant]
     Active Substance: PANTOPRAZOLE
     Indication: Product used for unknown indication
     Dosage: DAILY; PER DAY?ONGOING
     Route: 048
     Dates: start: 20220504
  21. MINIRIN [Concomitant]
     Active Substance: DESMOPRESSIN ACETATE
     Indication: Product used for unknown indication
     Dosage: DAILY; PER DAY
     Route: 045
     Dates: start: 20220502, end: 20220518
  22. INSULINA HUMALOG [Concomitant]
     Indication: Product used for unknown indication
     Dosage: 1 DF- 2 UNITS NOS?AS NEEDED?ONGOING
     Route: 058
     Dates: start: 20211125

REACTIONS (1)
  - Glucocorticoid deficiency [Recovered/Resolved with Sequelae]

NARRATIVE: CASE EVENT DATE: 20220512
